FAERS Safety Report 7179437-6 (Version None)
Quarter: 2010Q4

REPORT INFORMATION
  Report Type: 
  Country: None (occurrence: None)
  Receive Date: 20101208
  Receipt Date: 20101123
  Transmission Date: 20110411
  Serious: Yes (Other)
  Sender: FDA-Public Use
  Company Number: AUR-APL-2010-02978

PATIENT
  Age: 58 Year
  Sex: Female
  Weight: 117 kg

DRUGS (5)
  1. TERBINAFINE HCL [Suspect]
     Indication: FUNGAL INFECTION
     Dosage: 250MG - ORAL
     Route: 048
     Dates: start: 20100906, end: 20100920
  2. ALLOPURINOL [Concomitant]
  3. DICLOFENAC 50MG [Concomitant]
  4. HYDROXYCARBAMIDE 1G [Concomitant]
  5. LANSOPRAZOLE [Concomitant]

REACTIONS (1)
  - ILL-DEFINED DISORDER [None]
